FAERS Safety Report 10206489 (Version 2)
Quarter: 2014Q2

REPORT INFORMATION
  Report Type: Spontaneous
  Country: DE (occurrence: DE)
  Receive Date: 20140530
  Receipt Date: 20140603
  Transmission Date: 20141212
  Serious: Yes (Other)
  Sender: FDA-Public Use
  Company Number: DE-JNJFOC-20140514812

PATIENT
  Age: 17 Year
  Sex: Male

DRUGS (2)
  1. REMICADE [Suspect]
     Indication: MELKERSSON-ROSENTHAL SYNDROME
     Route: 042
     Dates: start: 2012, end: 201305
  2. DAPSON [Concomitant]
     Indication: MELKERSSON-ROSENTHAL SYNDROME
     Route: 065

REACTIONS (2)
  - Malignant melanoma [Unknown]
  - Off label use [Unknown]
